FAERS Safety Report 13424372 (Version 4)
Quarter: 2018Q2

REPORT INFORMATION
  Report Type: Spontaneous
  Country: IT (occurrence: IT)
  Receive Date: 20170410
  Receipt Date: 20180404
  Transmission Date: 20180711
  Serious: Yes (Hospitalization)
  Sender: FDA-Public Use
  Company Number: PHHY2017IT049943

PATIENT
  Age: 85 Year
  Sex: Female

DRUGS (2)
  1. ALPRAZOLAM. [Suspect]
     Active Substance: ALPRAZOLAM
     Indication: DRUG ABUSE
     Dosage: UNK UNK, ONCE/SINGLE
     Route: 048
  2. LORAZEPAM. [Suspect]
     Active Substance: LORAZEPAM
     Indication: DRUG ABUSE
     Dosage: 10 DF, TOTAL
     Route: 048

REACTIONS (5)
  - Drug abuse [Unknown]
  - Pneumonia aspiration [Unknown]
  - Pneumonia [Unknown]
  - Sopor [Unknown]
  - Overdose [Unknown]

NARRATIVE: CASE EVENT DATE: 20170123
